FAERS Safety Report 21154514 (Version 1)
Quarter: 2022Q3

REPORT INFORMATION
  Report Type: Spontaneous
  Country: US (occurrence: US)
  Receive Date: 20220801
  Receipt Date: 20220801
  Transmission Date: 20221026
  Serious: No
  Sender: FDA-Public Use
  Company Number: US-BRISTOL-MYERS SQUIBB COMPANY-2022-082530

PATIENT
  Age: 59 Year
  Sex: Male

DRUGS (1)
  1. REVLIMID [Suspect]
     Active Substance: LENALIDOMIDE
     Indication: Mantle cell lymphoma
     Dosage: FREQ: DAILY
     Route: 048
     Dates: start: 20220701

REACTIONS (5)
  - Constipation [Unknown]
  - Dry mouth [Unknown]
  - Pollakiuria [Unknown]
  - Headache [Unknown]
  - Skin exfoliation [Unknown]
